FAERS Safety Report 20184608 (Version 1)
Quarter: 2021Q4

REPORT INFORMATION
  Report Type: Report from Study
  Country: US (occurrence: US)
  Receive Date: 20211214
  Receipt Date: 20211214
  Transmission Date: 20220303
  Serious: Yes (Congenital Anomaly, Other)
  Sender: FDA-Public Use
  Company Number: US-ABBVIE-21K-163-4196257-00

PATIENT
  Age: 47 Year
  Sex: Female

DRUGS (1)
  1. SKYRIZI [Suspect]
     Active Substance: RISANKIZUMAB-RZAA
     Indication: Psoriasis
     Route: 058
     Dates: start: 20211111

REACTIONS (3)
  - Tuberculosis [Unknown]
  - Hypersensitivity [Unknown]
  - Headache [Unknown]

NARRATIVE: CASE EVENT DATE: 20211209
